FAERS Safety Report 16469610 (Version 1)
Quarter: 2019Q2

REPORT INFORMATION
  Report Type: Spontaneous
  Country: US (occurrence: US)
  Receive Date: 20190514
  Receipt Date: 20190514
  Transmission Date: 20190711
  Serious: No
  Sender: FDA-Public Use
  Company Number: None

PATIENT
  Age: 65 Year
  Sex: Female

DRUGS (4)
  1. HYDROCHLOROTHIAZIDE. [Concomitant]
     Active Substance: HYDROCHLOROTHIAZIDE
  2. ADEMPAS [Concomitant]
     Active Substance: RIOCIGUAT
  3. SILDENAFIL TAB 20MG [Suspect]
     Active Substance: SILDENAFIL
     Indication: PULMONARY ARTERIAL HYPERTENSION
     Route: 048
     Dates: start: 201903
  4. OPSUMIT [Concomitant]
     Active Substance: MACITENTAN

REACTIONS (2)
  - Therapy change [None]
  - Laboratory test abnormal [None]

NARRATIVE: CASE EVENT DATE: 20190514
